FAERS Safety Report 10459383 (Version 1)
Quarter: 2014Q3

REPORT INFORMATION
  Report Type: Spontaneous
  Country: US (occurrence: US)
  Receive Date: 20140917
  Receipt Date: 20140917
  Transmission Date: 20150326
  Serious: Yes (Hospitalization)
  Sender: FDA-Public Use
  Company Number: US-BAUSCH-BL-2014-004965

PATIENT
  Sex: Female

DRUGS (1)
  1. XENAZINE [Suspect]
     Active Substance: TETRABENAZINE
     Indication: HUNTINGTON^S DISEASE
     Dosage: 2 TABLETS IN THE MORNING, 1 TABLET IN THE AFTERNOON, AND 1 TABLET IN THE EVENING
     Route: 048
     Dates: start: 20140514

REACTIONS (2)
  - Disease progression [Unknown]
  - Asthenia [Unknown]
